FAERS Safety Report 7072598-9 (Version None)
Quarter: 2010Q4

REPORT INFORMATION
  Report Type: 
  Country: None (occurrence: None)
  Receive Date: 20101029
  Receipt Date: 20100323
  Transmission Date: 20110411
  Serious: No
  Sender: FDA-Public Use
  Company Number: A0844952A

PATIENT
  Age: 79 Year
  Sex: Female

DRUGS (6)
  1. ADVAIR DISKUS 100/50 [Suspect]
     Indication: ASTHMA
     Route: 055
     Dates: start: 20090930
  2. XANAX [Concomitant]
  3. NORVASC [Concomitant]
  4. THYROID MEDICATION [Concomitant]
  5. METOPROLOL [Concomitant]
  6. ALBUTEROL [Concomitant]

REACTIONS (2)
  - PRODUCT QUALITY ISSUE [None]
  - VISION BLURRED [None]
